FAERS Safety Report 25462706 (Version 1)
Quarter: 2025Q2

REPORT INFORMATION
  Report Type: Spontaneous
  Country: JP (occurrence: JP)
  Receive Date: 20250620
  Receipt Date: 20250620
  Transmission Date: 20250716
  Serious: Yes (Life-Threatening, Other)
  Sender: PFIZER
  Company Number: JP-PFIZER INC-PV202500072298

PATIENT
  Age: 8 Decade
  Sex: Male

DRUGS (1)
  1. METHYLPREDNISOLONE SODIUM SUCCINATE [Suspect]
     Active Substance: METHYLPREDNISOLONE SODIUM SUCCINATE
     Indication: Encephalitis brain stem
     Route: 042

REACTIONS (2)
  - Pneumatosis intestinalis [Unknown]
  - Off label use [Unknown]
